FAERS Safety Report 8614530-X (Version None)
Quarter: 2012Q3

REPORT INFORMATION
  Report Type: 
  Country: None (occurrence: None)
  Receive Date: 20120823
  Receipt Date: 20120820
  Transmission Date: 20120928
  Serious: Yes (Hospitalization, Other)
  Sender: FDA-Public Use
  Company Number: PHEH2011US011882

PATIENT
  Sex: Female

DRUGS (21)
  1. SINGULAIR [Concomitant]
     Dosage: UNK UKN, UNK
  2. XOPENEX HFA [Concomitant]
     Indication: CHRONIC OBSTRUCTIVE PULMONARY DISEASE
     Dosage: UNK UKN, UNK
  3. HYDROCODIN [Concomitant]
     Dosage: UNK UKN, UNK
  4. LASIX [Concomitant]
     Dosage: 40 MG, TID
  5. VIVELLE-DOT [Suspect]
     Dosage: 0.075 MG, TWICE WEEKLY
     Route: 062
     Dates: start: 20010101
  6. XOPENEX HFA [Concomitant]
     Dosage: 45MCG/200
  7. IPRATROPIUM BROMIDE [Concomitant]
     Dosage: UNK UKN, UNK
  8. ALPRAZOLAM [Concomitant]
     Dosage: UNK UKN, UNK
  9. METHOCARBAMOL [Concomitant]
     Dosage: UNK UKN, UNK
  10. FUROSEMIDE [Concomitant]
     Dosage: UNK UKN, UNK
  11. ZETIA [Concomitant]
     Dosage: 10 MG, QD
  12. LEXAPRO [Concomitant]
     Dosage: 0.5 TO 1 PILL PER DAY
  13. SPIRIVA [Concomitant]
     Dosage: UNK UKN, UNK
  14. VIVELLE-DOT [Suspect]
     Dosage: 0.075 UKN, UNK
  15. NEXIUM [Concomitant]
     Dosage: UNK UKN, UNK
  16. VERAPAMIL [Concomitant]
     Dosage: 2 DF, QD
  17. FERROUS SULFATE TAB [Concomitant]
     Dosage: 1 DF, QD
  18. CHLORPROMAZINE HCL [Concomitant]
     Dosage: 100 MG 1 X PER DAY - SHE CUTS THE TABLET IN HALF TO TAKE IT TWICE A DAY
  19. POTASSIUM [Concomitant]
     Dosage: UNK UKN, UNK
  20. BUSPIRONE HCL [Concomitant]
     Dosage: UNK UKN, UNK
  21. SIMVASTATIN [Concomitant]
     Dosage: 20 MG, QD

REACTIONS (6)
  - BRONCHITIS CHRONIC [None]
  - PNEUMONIA [None]
  - EAR INFECTION [None]
  - AMNESIA [None]
  - ARTHROPATHY [None]
  - PRODUCT ADHESION ISSUE [None]
